FAERS Safety Report 4975645-0 (Version None)
Quarter: 2006Q2

REPORT INFORMATION
  Report Type: 
  Country: None (occurrence: None)
  Receive Date: 20060418
  Receipt Date: 20060228
  Transmission Date: 20061013
  Serious: Yes (Hospitalization)
  Sender: FDA-Public Use
  Company Number: JP-BRISTOL-MYERS SQUIBB COMPANY-13349881

PATIENT
  Age: 79 Year
  Sex: Male

DRUGS (4)
  1. RESLIN [Suspect]
     Route: 048
  2. HALOPERIDOL [Suspect]
  3. BIPERIDEN HYDROCHLORIDE TAB [Concomitant]
  4. ZOPICLONE [Concomitant]

REACTIONS (1)
  - NEUROLEPTIC MALIGNANT SYNDROME [None]
